FAERS Safety Report 25616847 (Version 1)
Quarter: 2025Q3

REPORT INFORMATION
  Report Type: Spontaneous
  Country: US (occurrence: None)
  Receive Date: 20250726
  Receipt Date: 20250726
  Transmission Date: 20251020
  Serious: Yes (Hospitalization)
  Sender: FDA-CTU
  Company Number: None

PATIENT
  Sex: Female

DRUGS (1)
  1. VERZENIO [Suspect]
     Active Substance: ABEMACICLIB
     Indication: Breast cancer female
     Dosage: FREQUENCY : TWICE A DAY;?
     Route: 048
     Dates: start: 20241030

REACTIONS (8)
  - Urinary tract infection [None]
  - Incorrect dosage administered [None]
  - Hypotension [None]
  - Dizziness [None]
  - Loss of consciousness [None]
  - Muscular weakness [None]
  - Pneumonia [None]
  - Sepsis [None]
